FAERS Safety Report 4315645-7 (Version None)
Quarter: 2004Q1

REPORT INFORMATION
  Report Type: 
  Country: None (occurrence: None)
  Receive Date: 20040309
  Receipt Date: 20040219
  Transmission Date: 20041129
  Serious: Yes (Other)
  Sender: FDA-Public Use
  Company Number: USA040259869

PATIENT
  Age: 6 Year
  Sex: Female

DRUGS (2)
  1. STRATTERA [Suspect]
     Indication: ATTENTION DEFICIT/HYPERACTIVITY DISORDER
     Dosage: 25 MG/ 1 DAY
     Dates: start: 20031218, end: 20040115
  2. FLUOXETINE [Concomitant]

REACTIONS (6)
  - BLOOD GLUCOSE DECREASED [None]
  - BLOOD POTASSIUM DECREASED [None]
  - BLOOD PRESSURE DECREASED [None]
  - DEPRESSED LEVEL OF CONSCIOUSNESS [None]
  - LOSS OF CONSCIOUSNESS [None]
  - SYNCOPE [None]
